APPROVED DRUG PRODUCT: METOPROLOL TARTRATE
Active Ingredient: METOPROLOL TARTRATE
Strength: 25MG
Dosage Form/Route: TABLET;ORAL
Application: A076670 | Product #001
Applicant: SUN PHARMACEUTICAL INDUSTRIES INC
Approved: Jan 15, 2004 | RLD: No | RS: No | Type: DISCN